FAERS Safety Report 4710508-7 (Version None)
Quarter: 2005Q3

REPORT INFORMATION
  Report Type: 
  Country: None (occurrence: None)
  Receive Date: 20050711
  Receipt Date: 20050701
  Transmission Date: 20060218
  Serious: Yes (Hospitalization)
  Sender: FDA-Public Use
  Company Number: CH-ROCHE-409473

PATIENT
  Age: 63 Year
  Sex: Male
  Weight: 93 kg

DRUGS (10)
  1. TORSEMIDE [Suspect]
     Dosage: THERAPY DURATION REPORTED AS 'LONG TERM'
     Route: 048
     Dates: end: 20050416
  2. COMILORID-MEPHA [Interacting]
     Dosage: STRENGTH REPORTED AS 50MG/5MG
     Route: 048
  3. COMILORID-MEPHA [Interacting]
     Dosage: DOSE REDUCED FOLLOWING EVENT ONSET
     Route: 048
  4. ASPIRIN [Concomitant]
     Route: 048
  5. CORDARONE [Concomitant]
     Route: 048
  6. PRAVASTATIN SODIUM [Concomitant]
     Route: 048
  7. METOPROLOL SUCCINATE [Concomitant]
     Indication: ESSENTIAL HYPERTENSION
     Dosage: INDICATION WAS REPORTED AS ESSENTIAL (PRIMARY) HYPERTENSION
     Route: 048
  8. PRADIF [Concomitant]
     Route: 048
  9. SPIRICORT [Concomitant]
     Dosage: ALSO REPORTED AS HALF ONCE DAILY; DOSEFORM WAS REPORTED AS FILM COATED TABLETS; INDICATION REPORTED+
     Route: 048
     Dates: start: 20050415
  10. FRAGMIN [Concomitant]
     Route: 058
     Dates: end: 20050417

REACTIONS (6)
  - BLOOD UREA INCREASED [None]
  - CREATININE RENAL CLEARANCE INCREASED [None]
  - DRUG INTERACTION [None]
  - GOUTY ARTHRITIS [None]
  - HYPERURICAEMIA [None]
  - RENAL FAILURE ACUTE [None]
